FAERS Safety Report 6285244-9 (Version None)
Quarter: 2009Q3

REPORT INFORMATION
  Report Type: 
  Country: None (occurrence: None)
  Receive Date: 20090727
  Receipt Date: 20090720
  Transmission Date: 20100115
  Serious: Yes (Other)
  Sender: FDA-Public Use
  Company Number: GB-TEVA-202873ISR

PATIENT
  Age: 71 Year
  Sex: Female

DRUGS (5)
  1. MINOCYCLINE HCL [Suspect]
     Indication: PYODERMA GANGRENOSUM
  2. PREDNISOLONE [Suspect]
     Indication: PYODERMA GANGRENOSUM
  3. CYCLOSPORINE [Suspect]
     Indication: PYODERMA GANGRENOSUM
  4. DAPSONE [Suspect]
     Indication: PYODERMA GANGRENOSUM
  5. MYCOPHENOLATE MOFETIL [Suspect]
     Indication: PYODERMA GANGRENOSUM

REACTIONS (4)
  - EMOTIONAL DISTRESS [None]
  - HYPERTENSION [None]
  - OSTEOPOROSIS [None]
  - TREATMENT FAILURE [None]
